FAERS Safety Report 25910307 (Version 2)
Quarter: 2025Q4

REPORT INFORMATION
  Report Type: Spontaneous
  Country: US (occurrence: US)
  Receive Date: 20251012
  Receipt Date: 20251211
  Transmission Date: 20260117
  Serious: No
  Sender: SANOFI AVENTIS
  Company Number: US-SA-2025SA297755

PATIENT
  Age: 84 Year
  Sex: Male

DRUGS (2)
  1. DUPIXENT [Suspect]
     Active Substance: DUPILUMAB
     Indication: Neurodermatitis
     Dosage: 300 MG, QOW
     Route: 058
     Dates: start: 20250805
  2. PREDNISONE [Suspect]
     Active Substance: PREDNISONE
     Dosage: UNK

REACTIONS (9)
  - Hair growth abnormal [Not Recovered/Not Resolved]
  - Exploding head syndrome [Unknown]
  - Skin ulcer [Recovering/Resolving]
  - Dizziness [Unknown]
  - Skin exfoliation [Unknown]
  - Pruritus [Unknown]
  - Skin burning sensation [Unknown]
  - Injection site pain [Recovered/Resolved]
  - Neurodermatitis [Unknown]

NARRATIVE: CASE EVENT DATE: 20250101
